FAERS Safety Report 24208634 (Version 1)
Quarter: 2024Q3

REPORT INFORMATION
  Report Type: Spontaneous
  Country: CN (occurrence: CN)
  Receive Date: 20240814
  Receipt Date: 20240814
  Transmission Date: 20241017
  Serious: Yes (Death)
  Sender: Teyro Labs
  Company Number: CN-TEYRO-2024-TY-000428

PATIENT
  Age: 64 Year
  Sex: Female

DRUGS (15)
  1. CARBOPLATIN [Suspect]
     Active Substance: CARBOPLATIN
     Indication: Malignant neoplasm of thorax
     Dosage: 3 CYCLE, 400 MG ON DAY 2
     Route: 065
  2. CARBOPLATIN [Suspect]
     Active Substance: CARBOPLATIN
     Indication: Malignant neoplasm of thorax
     Dosage: 1 CYCLE, 500 MG ON DAY 1
     Route: 065
  3. CARBOPLATIN [Suspect]
     Active Substance: CARBOPLATIN
     Indication: Malignant neoplasm of thorax
  4. BEVACIZUMAB [Suspect]
     Active Substance: BEVACIZUMAB
     Indication: Malignant neoplasm of thorax
     Dosage: 4 CYCLES, 500 MG ON DAY 0
     Route: 065
  5. BEVACIZUMAB [Suspect]
     Active Substance: BEVACIZUMAB
     Indication: Malignant neoplasm of thorax
     Dosage: 1 CYCLE, 500 MG ON DAY 0
     Route: 065
  6. BEVACIZUMAB [Suspect]
     Active Substance: BEVACIZUMAB
     Indication: Malignant neoplasm of thorax
  7. INVESTIGATIONAL PRODUCT [Suspect]
     Active Substance: INVESTIGATIONAL PRODUCT
     Indication: Malignant neoplasm of thorax
     Dosage: 1 CYCLE, 500 MG ON DAY 0
     Route: 065
  8. INVESTIGATIONAL PRODUCT [Suspect]
     Active Substance: INVESTIGATIONAL PRODUCT
     Indication: Malignant neoplasm of thorax
  9. INVESTIGATIONAL PRODUCT [Suspect]
     Active Substance: INVESTIGATIONAL PRODUCT
     Indication: Malignant neoplasm of thorax
  10. DOCETAXEL [Suspect]
     Active Substance: DOCETAXEL\DOCETAXEL ANHYDROUS
     Indication: Malignant neoplasm of thorax
     Dosage: 3 CYCLE, 90 MG ON DAY 1
     Route: 065
  11. DOCETAXEL [Suspect]
     Active Substance: DOCETAXEL\DOCETAXEL ANHYDROUS
     Indication: Malignant neoplasm of thorax
  12. DOCETAXEL [Suspect]
     Active Substance: DOCETAXEL\DOCETAXEL ANHYDROUS
     Indication: Malignant neoplasm of thorax
  13. CISPLATIN [Suspect]
     Active Substance: CISPLATIN
     Indication: Malignant neoplasm of thorax
     Dosage: 4 CYCLES, PERITONEAL THERMOPERFUSION
     Route: 033
  14. CISPLATIN [Suspect]
     Active Substance: CISPLATIN
     Indication: Malignant neoplasm of thorax
  15. CISPLATIN [Suspect]
     Active Substance: CISPLATIN
     Indication: Malignant neoplasm of thorax

REACTIONS (3)
  - Multi-organ disorder [Fatal]
  - Metastasis [Fatal]
  - Off label use [Unknown]
